FAERS Safety Report 9752152 (Version 1)
Quarter: 2013Q4

REPORT INFORMATION
  Report Type: Spontaneous
  Country: US (occurrence: None)
  Receive Date: 20131211
  Receipt Date: 20131211
  Transmission Date: 20140711
  Serious: Yes (Hospitalization)
  Sender: FDA-Public Use
  Company Number: None

PATIENT
  Age: 44 Year
  Sex: Female
  Weight: 96 kg

DRUGS (1)
  1. XARELTO [Suspect]
     Indication: DEEP VEIN THROMBOSIS
     Dosage: UNKNOWN, ORAL
     Route: 048

REACTIONS (1)
  - Stevens-Johnson syndrome [None]
